FAERS Safety Report 6406249-0 (Version None)
Quarter: 2009Q4

REPORT INFORMATION
  Report Type: 
  Country: None (occurrence: None)
  Receive Date: 20091019
  Receipt Date: 20091006
  Transmission Date: 20100525
  Serious: Yes (Other)
  Sender: FDA-Public Use
  Company Number: PHEH2009US13127

PATIENT
  Sex: Male

DRUGS (3)
  1. EXJADE [Suspect]
     Indication: MYELOFIBROSIS
     Dosage: 2000 MG DAILY
     Route: 048
     Dates: start: 20090915, end: 20090922
  2. EXJADE [Suspect]
     Indication: ANAEMIA
  3. EXJADE [Suspect]
     Indication: IRON OVERLOAD

REACTIONS (1)
  - SPLENECTOMY [None]
